FAERS Safety Report 4568088-5 (Version None)
Quarter: 2005Q1

REPORT INFORMATION
  Report Type: 
  Country: None (occurrence: None)
  Receive Date: 20050128
  Receipt Date: 20050118
  Transmission Date: 20050727
  Serious: No
  Sender: FDA-Public Use
  Company Number: 2004UW19051

PATIENT
  Age: 24 Month
  Sex: Male
  Weight: 13.6079 kg

DRUGS (1)
  1. OMEPRAZOLE [Suspect]
     Indication: GASTROOESOPHAGEAL REFLUX DISEASE
     Dosage: 10 MG DAILY PO
     Route: 048
     Dates: start: 20031212, end: 20040407

REACTIONS (7)
  - DIARRHOEA [None]
  - EOSINOPHILIA [None]
  - HAEMATOCHEZIA [None]
  - MEDICATION ERROR [None]
  - OESOPHAGITIS [None]
  - PHARMACEUTICAL PRODUCT COMPLAINT [None]
  - ULCER HAEMORRHAGE [None]
